FAERS Safety Report 13972045 (Version 1)
Quarter: 2017Q3

REPORT INFORMATION
  Report Type: Spontaneous
  Country: US (occurrence: None)
  Receive Date: 20170914
  Receipt Date: 20170914
  Transmission Date: 20171128
  Serious: No
  Sender: FDA-Public Use
  Company Number: None

PATIENT
  Age: 45 Year
  Sex: Female

DRUGS (1)
  1. ENBREL [Suspect]
     Active Substance: ETANERCEPT
     Indication: RHEUMATOID ARTHRITIS
     Dosage: 50 MG/ML WEEKLY
     Route: 058
     Dates: start: 20170601

REACTIONS (2)
  - Vulvovaginal burning sensation [None]
  - Dyspareunia [None]

NARRATIVE: CASE EVENT DATE: 20170912
